FAERS Safety Report 21634575 (Version 1)
Quarter: 2022Q4

REPORT INFORMATION
  Report Type: Spontaneous
  Country: IT (occurrence: IT)
  Receive Date: 20221123
  Receipt Date: 20221123
  Transmission Date: 20230113
  Serious: Yes (Life-Threatening, Hospitalization, Other)
  Sender: FDA-Public Use
  Company Number: IT-PFIZER INC-PV202200108667

PATIENT
  Age: 58 Year
  Sex: Female

DRUGS (3)
  1. DOXYCYCLINE HYCLATE [Suspect]
     Active Substance: DOXYCYCLINE HYCLATE
     Indication: Infection
     Dosage: UNK
  2. AMBISOME [Suspect]
     Active Substance: AMPHOTERICIN B
     Indication: Infection
     Dosage: UNK
  3. PREDNISONE [Concomitant]
     Active Substance: PREDNISONE
     Indication: Pyrexia
     Dosage: 80 MG, 1X/DAY

REACTIONS (1)
  - Drug ineffective [Unknown]
